FAERS Safety Report 21004020 (Version 1)
Quarter: 2022Q2

REPORT INFORMATION
  Report Type: Spontaneous
  Country: AU (occurrence: AU)
  Receive Date: 20220624
  Receipt Date: 20220624
  Transmission Date: 20220721
  Serious: Yes (Hospitalization)
  Sender: FDA-Public Use
  Company Number: AU-ORGANON-O2206AUS001594

PATIENT
  Age: 87 Year
  Sex: Female

DRUGS (1)
  1. SINEMET CR [Suspect]
     Active Substance: CARBIDOPA\LEVODOPA
     Dosage: 200/50 HALF A TABLET AT NIGHT
     Route: 048

REACTIONS (5)
  - Cardiac disorder [Unknown]
  - Off label use [Unknown]
  - Prescribed underdose [Unknown]
  - Product prescribing issue [Unknown]
  - Wrong technique in product usage process [Unknown]
